FAERS Safety Report 10442803 (Version 4)
Quarter: 2015Q1

REPORT INFORMATION
  Report Type: Spontaneous
  Country: US (occurrence: US)
  Receive Date: 20140909
  Receipt Date: 20150106
  Transmission Date: 20150720
  Serious: Yes (Hospitalization)
  Sender: FDA-Public Use
  Company Number: US-GILEAD-2014-0114525

PATIENT
  Age: 76 Year
  Sex: Female

DRUGS (16)
  1. TRAMADOL [Concomitant]
     Active Substance: TRAMADOL
  2. ADCIRCA [Concomitant]
     Active Substance: TADALAFIL
  3. NUVIGIL [Concomitant]
     Active Substance: ARMODAFINIL
  4. LETAIRIS [Suspect]
     Active Substance: AMBRISENTAN
     Indication: PULMONARY ARTERIAL HYPERTENSION
     Dosage: 10 MG, QD
     Route: 065
     Dates: start: 20120412, end: 20141106
  5. AMITRIPTYLINE [Concomitant]
     Active Substance: AMITRIPTYLINE
  6. DILANTIN [Concomitant]
     Active Substance: PHENYTOIN
  7. ADCIRCA [Concomitant]
     Active Substance: TADALAFIL
     Indication: PULMONARY HYPERTENSION
     Dates: start: 20140822
  8. OMEPRAZOLE. [Concomitant]
     Active Substance: OMEPRAZOLE
  9. PROTONIX [Concomitant]
     Active Substance: PANTOPRAZOLE SODIUM
  10. PROCRIT [Concomitant]
     Active Substance: ERYTHROPOIETIN
  11. LISINOPRIL. [Concomitant]
     Active Substance: LISINOPRIL
  12. METOLAZONE. [Concomitant]
     Active Substance: METOLAZONE
  13. LIPITOR [Concomitant]
     Active Substance: ATORVASTATIN CALCIUM
  14. BABY ASPIRIN [Concomitant]
     Active Substance: ASPIRIN
  15. FUROSEMIDE. [Concomitant]
     Active Substance: FUROSEMIDE
  16. DILTIAZEM [Concomitant]
     Active Substance: DILTIAZEM

REACTIONS (1)
  - Fluid retention [Recovered/Resolved]

NARRATIVE: CASE EVENT DATE: 20140903
